FAERS Safety Report 20548160 (Version 1)
Quarter: 2022Q1

REPORT INFORMATION
  Report Type: Spontaneous
  Country: PT (occurrence: PT)
  Receive Date: 20220303
  Receipt Date: 20220303
  Transmission Date: 20220424
  Serious: Yes (Life-Threatening, Hospitalization)
  Sender: FDA-Public Use
  Company Number: PT-DSJP-DSE-2022-107114

PATIENT
  Age: 79 Year
  Sex: Male

DRUGS (1)
  1. EDOXABAN [Suspect]
     Active Substance: EDOXABAN
     Indication: Anticoagulant therapy
     Dosage: UNK

REACTIONS (3)
  - Tumour haemorrhage [Recovered/Resolved]
  - Haemoperitoneum [Recovered/Resolved]
  - Gastric cancer [Recovered/Resolved]
